FAERS Safety Report 19470833 (Version 2)
Quarter: 2021Q3

REPORT INFORMATION
  Report Type: Report from Study
  Country: DE (occurrence: DE)
  Receive Date: 20210628
  Receipt Date: 20210907
  Transmission Date: 20211014
  Serious: Yes (Hospitalization, Other)
  Sender: FDA-Public Use
  Company Number: DE-TAKEDA-2021TUS038648

PATIENT
  Age: 62 Year
  Sex: Female

DRUGS (16)
  1. TEDUGLUTIDE [Suspect]
     Active Substance: TEDUGLUTIDE
     Indication: SHORT-BOWEL SYNDROME
     Dosage: 3 MILLIGRAM, QD (0.05 MG/KG), 7 DOSES PER WEEK
     Route: 065
     Dates: start: 20151109, end: 201801
  2. TEDUGLUTIDE [Suspect]
     Active Substance: TEDUGLUTIDE
     Dosage: UNK UNK, SINGLE
     Route: 065
     Dates: start: 20151109, end: 201801
  3. PROPOFOL. [Concomitant]
     Active Substance: PROPOFOL
     Indication: ENDOSCOPY UPPER GASTROINTESTINAL TRACT
     Dosage: 280 MILLIGRAM, X1? ONE DOSE
     Route: 042
     Dates: start: 20200114, end: 20200114
  4. TEDUGLUTIDE [Suspect]
     Active Substance: TEDUGLUTIDE
     Dosage: UNK UNK, SINGLE
     Route: 065
     Dates: start: 20151109, end: 201801
  5. TEDUGLUTIDE [Suspect]
     Active Substance: TEDUGLUTIDE
     Indication: SHORT-BOWEL SYNDROME
     Dosage: 3 MILLIGRAM, QD (0.05 MG/KG), 7 DOSES PER WEEK
     Route: 065
     Dates: start: 20151109, end: 201801
  6. TEDUGLUTIDE [Suspect]
     Active Substance: TEDUGLUTIDE
     Indication: SHORT-BOWEL SYNDROME
     Dosage: 3 MILLIGRAM, QD (0.05 MG/KG), 7 DOSES PER WEEK
     Route: 065
     Dates: start: 20151109, end: 201801
  7. TEDUGLUTIDE [Suspect]
     Active Substance: TEDUGLUTIDE
     Dosage: UNK UNK, SINGLE
     Route: 065
     Dates: start: 20151109, end: 201801
  8. TEDUGLUTIDE [Suspect]
     Active Substance: TEDUGLUTIDE
     Dosage: 3 MILLIGRAM, QD (0.05 MG/KG), 7 DOSES PER WEEK
     Route: 065
     Dates: start: 201902
  9. TEDUGLUTIDE [Suspect]
     Active Substance: TEDUGLUTIDE
     Dosage: UNK UNK, SINGLE
     Route: 065
     Dates: start: 20151109, end: 201801
  10. DEKRISTOL [Concomitant]
     Active Substance: CHOLECALCIFEROL
     Indication: VITAMIN D DEFICIENCY
     Dosage: 20000 INTERNATIONAL UNIT, 1/WEEK
     Route: 048
     Dates: start: 201902
  11. TEDUGLUTIDE [Suspect]
     Active Substance: TEDUGLUTIDE
     Indication: SHORT-BOWEL SYNDROME
     Dosage: 3 MILLIGRAM, QD (0.05 MG/KG), 7 DOSES PER WEEK
     Route: 065
     Dates: start: 20151109, end: 201801
  12. TEDUGLUTIDE [Suspect]
     Active Substance: TEDUGLUTIDE
     Dosage: 3 MILLIGRAM, QD (0.05 MG/KG), 7 DOSES PER WEEK
     Route: 065
     Dates: start: 201902
  13. TEDUGLUTIDE [Suspect]
     Active Substance: TEDUGLUTIDE
     Dosage: 3 MILLIGRAM, QD (0.05 MG/KG), 7 DOSES PER WEEK
     Route: 065
     Dates: start: 201902
  14. TEDUGLUTIDE [Suspect]
     Active Substance: TEDUGLUTIDE
     Dosage: 3 MILLIGRAM, QD (0.05 MG/KG), 7 DOSES PER WEEK
     Route: 065
     Dates: start: 201902
  15. PROPOFOL. [Concomitant]
     Active Substance: PROPOFOL
     Indication: COLONOSCOPY
     Dosage: 170 MILLIGRAM, X1? ONE DOSE
     Route: 042
     Dates: start: 20200114, end: 20200114
  16. LOPERAMIDE [Concomitant]
     Active Substance: LOPERAMIDE
     Indication: DIARRHOEA
     Dosage: 4 MILLIGRAM, TID
     Route: 048
     Dates: start: 2015

REACTIONS (2)
  - Vascular device infection [Unknown]
  - Gastric polyps [Recovered/Resolved]

NARRATIVE: CASE EVENT DATE: 202001
